FAERS Safety Report 7035976-X (Version None)
Quarter: 2010Q4

REPORT INFORMATION
  Report Type: 
  Country: None (occurrence: None)
  Receive Date: 20101008
  Receipt Date: 20101001
  Transmission Date: 20110411
  Serious: Yes (Death, Hospitalization, Other)
  Sender: FDA-Public Use
  Company Number: US-SANOFI-AVENTIS-A03200607586

PATIENT
  Age: 74 Year
  Sex: Male

DRUGS (19)
  1. CLOPIDOGREL BISULFATE [Suspect]
     Dosage: UNIT DOSE: 75 MG
     Route: 048
     Dates: start: 20021101
  2. CLOPIDOGREL BISULFATE [Suspect]
     Indication: STENT PLACEMENT
     Dosage: UNIT DOSE: 75 MG
     Route: 048
     Dates: start: 20021101
  3. CLOPIDOGREL BISULFATE [Suspect]
     Route: 048
     Dates: start: 20030701, end: 20030701
  4. CLOPIDOGREL BISULFATE [Suspect]
     Route: 048
     Dates: start: 20030701, end: 20030701
  5. CLOPIDOGREL BISULFATE [Suspect]
     Route: 048
     Dates: start: 20030702
  6. CLOPIDOGREL BISULFATE [Suspect]
     Route: 048
     Dates: start: 20030702
  7. ASPIRIN [Suspect]
     Route: 048
     Dates: start: 20021101
  8. ASPIRIN [Suspect]
     Indication: STENT PLACEMENT
     Route: 048
     Dates: start: 20021101
  9. LANOXIN [Concomitant]
  10. TOPROL-XL [Concomitant]
  11. ZOCOR [Concomitant]
  12. TERAZOSIN HCL [Concomitant]
  13. COZAAR [Concomitant]
  14. NORVASC [Concomitant]
  15. PREVACID [Concomitant]
  16. LASIX [Concomitant]
  17. CELEBREX [Concomitant]
  18. PROCARDIA [Concomitant]
  19. VITAMINS [Concomitant]

REACTIONS (10)
  - BILIARY COLIC [None]
  - BRAIN HERNIATION [None]
  - BRAIN INJURY [None]
  - BRAIN STEM SYNDROME [None]
  - CHOLECYSTITIS ACUTE [None]
  - COMA [None]
  - GASTRITIS [None]
  - POSTURING [None]
  - RESPIRATORY FAILURE [None]
  - SUBDURAL HAEMATOMA [None]
